FAERS Safety Report 9611510 (Version 2)
Quarter: 2014Q1

REPORT INFORMATION
  Report Type: Spontaneous
  Country: US (occurrence: US)
  Receive Date: 20131010
  Receipt Date: 20140206
  Transmission Date: 20141002
  Serious: Yes (Death, Other)
  Sender: FDA-Public Use
  Company Number: US-BRISTOL-MYERS SQUIBB COMPANY-19390210

PATIENT
  Age: 64 Year
  Sex: Male

DRUGS (6)
  1. BYETTA PEN DISPOSABLE [Suspect]
     Indication: TYPE 2 DIABETES MELLITUS
     Dates: start: 2010, end: 201212
  2. LISINOPRIL [Concomitant]
     Route: 048
  3. LANTUS [Concomitant]
     Route: 058
  4. GLYBURIDE + METFORMIN HCL [Concomitant]
     Dosage: 1DF:2.5 MG-500 MG
     Route: 048
  5. INSULIN [Concomitant]
  6. RAPAFLO [Concomitant]

REACTIONS (2)
  - Pancreatic carcinoma [Fatal]
  - Jaundice cholestatic [Unknown]
